FAERS Safety Report 14656648 (Version 1)
Quarter: 2018Q1

REPORT INFORMATION
  Report Type: Report from Study
  Country: US (occurrence: US)
  Receive Date: 20180319
  Receipt Date: 20180319
  Transmission Date: 20180509
  Serious: Yes (Hospitalization)
  Sender: FDA-Public Use
  Company Number: US-SHIRE-US201808769

PATIENT

DRUGS (1)
  1. GATTEX [Suspect]
     Active Substance: TEDUGLUTIDE\WATER
     Indication: SHORT-BOWEL SYNDROME
     Dosage: 0.29 UNK, UNK
     Route: 065
     Dates: start: 20170623

REACTIONS (3)
  - Dysphagia [Recovering/Resolving]
  - Weight decreased [Recovering/Resolving]
  - Pharyngitis [Recovering/Resolving]

NARRATIVE: CASE EVENT DATE: 20180227
